FAERS Safety Report 8342912-2 (Version None)
Quarter: 2012Q2

REPORT INFORMATION
  Report Type: 
  Country: None (occurrence: None)
  Receive Date: 20120508
  Receipt Date: 20120503
  Transmission Date: 20120825
  Serious: No
  Sender: FDA-Public Use
  Company Number: US-PFIZER INC-2012109189

PATIENT
  Sex: Male
  Weight: 90.8 kg

DRUGS (1)
  1. LOMOTIL [Suspect]
     Indication: DIARRHOEA
     Dosage: 2.5 MG, THREE TIMES A DAY AS NEEDED
     Route: 048
     Dates: start: 20080101, end: 20110901

REACTIONS (1)
  - DRUG SCREEN FALSE POSITIVE [None]
